APPROVED DRUG PRODUCT: DIFLUNISAL
Active Ingredient: DIFLUNISAL
Strength: 250MG
Dosage Form/Route: TABLET;ORAL
Application: A073562 | Product #001
Applicant: DASTECH INTERNATIONAL INC
Approved: Nov 27, 1992 | RLD: No | RS: No | Type: DISCN